FAERS Safety Report 5655338-7 (Version None)
Quarter: 2008Q1

REPORT INFORMATION
  Report Type: 
  Country: None (occurrence: None)
  Receive Date: 20080307
  Receipt Date: 20080304
  Transmission Date: 20080703
  Serious: Yes (Death, Hospitalization)
  Sender: FDA-Public Use
  Company Number: US-WYE-H02926708

PATIENT
  Age: 48 Year
  Sex: Male
  Weight: 103 kg

DRUGS (3)
  1. MYLOTARG [Suspect]
     Indication: ACUTE MYELOID LEUKAEMIA
     Dosage: 6 MG TOTAL DOSE ADMINISTERED
     Route: 042
     Dates: start: 20080108, end: 20080112
  2. CYTARABINE [Concomitant]
     Indication: ACUTE MYELOID LEUKAEMIA
  3. DAUNORUBICIN HCL [Concomitant]
     Indication: ACUTE MYELOID LEUKAEMIA

REACTIONS (1)
  - RESPIRATORY FAILURE [None]
